FAERS Safety Report 19987782 (Version 2)
Quarter: 2021Q4

REPORT INFORMATION
  Report Type: Spontaneous
  Country: IN (occurrence: IN)
  Receive Date: 20211022
  Receipt Date: 20211221
  Transmission Date: 20220303
  Serious: Yes (Other)
  Sender: FDA-Public Use
  Company Number: IN-PFIZER INC-202101275887

PATIENT
  Age: 71 Year
  Sex: Female

DRUGS (7)
  1. PALBOCICLIB [Suspect]
     Active Substance: PALBOCICLIB
     Indication: Breast cancer metastatic
     Dosage: UNK
     Dates: end: 2020
  2. PALBOCICLIB [Suspect]
     Active Substance: PALBOCICLIB
     Dosage: 75 MG, DAILY, 3 WEEKS-}1 WEEK BREAK
  3. XGEVA [Concomitant]
     Active Substance: DENOSUMAB
     Dosage: 120 MG, ONCE IN 4 WEEKS
  4. CARPRONIUM CHLORIDE [Concomitant]
     Active Substance: CARPRONIUM CHLORIDE
     Dosage: UNK
  5. LETROZOLE [Concomitant]
     Active Substance: LETROZOLE
     Dosage: UNK
  6. FULVESTRANT [Concomitant]
     Active Substance: FULVESTRANT
     Dosage: 500 MG (250MG IN EACH BUTTOCK X 2), ON DAY 1 + DAY 15 (1ST MONTH)
  7. TAMOXIFEN [Concomitant]
     Active Substance: TAMOXIFEN

REACTIONS (7)
  - Parkinson^s disease [Unknown]
  - Malaise [Unknown]
  - Dementia [Unknown]
  - Skin wrinkling [Unknown]
  - Skin discolouration [Unknown]
  - Hypophagia [Unknown]
  - Neoplasm progression [Unknown]
